FAERS Safety Report 24647666 (Version 1)
Quarter: 2024Q4

REPORT INFORMATION
  Report Type: Report from Study
  Country: US (occurrence: US)
  Receive Date: 20241121
  Receipt Date: 20241121
  Transmission Date: 20250114
  Serious: Yes (Other)
  Sender: TAKEDA
  Company Number: US-TAKEDA-2024TUS060389

PATIENT
  Sex: Male

DRUGS (3)
  1. FRUQUINTINIB [Suspect]
     Active Substance: FRUQUINTINIB
     Indication: Small intestine carcinoma
     Dosage: 5 MILLIGRAM
  2. FRUQUINTINIB [Suspect]
     Active Substance: FRUQUINTINIB
     Indication: Neoplasm malignant
     Dosage: 4 MILLIGRAM
  3. FRUQUINTINIB [Suspect]
     Active Substance: FRUQUINTINIB
     Indication: Colon cancer

REACTIONS (2)
  - Colon cancer [Unknown]
  - Off label use [Unknown]
